FAERS Safety Report 23803722 (Version 1)
Quarter: 2024Q2

REPORT INFORMATION
  Report Type: Spontaneous
  Country: US (occurrence: None)
  Receive Date: 20240430
  Receipt Date: 20240430
  Transmission Date: 20240716
  Serious: No
  Sender: FDA-Public Use
  Company Number: None

PATIENT
  Age: 58 Year
  Sex: Female

DRUGS (1)
  1. HUMIRA [Suspect]
     Active Substance: ADALIMUMAB
     Indication: Rheumatoid arthritis
     Dosage: FREQUENCY : EVERY OTHER WEEK;?
     Route: 058
     Dates: start: 202209

REACTIONS (8)
  - Ear infection [None]
  - Pharyngitis [None]
  - Sinusitis [None]
  - Pain [None]
  - Therapy interrupted [None]
  - Condition aggravated [None]
  - Muscle twitching [None]
  - Angina pectoris [None]
